FAERS Safety Report 6230335-1 (Version None)
Quarter: 2009Q2

REPORT INFORMATION
  Report Type: 
  Country: None (occurrence: None)
  Receive Date: 20090611
  Receipt Date: 20090602
  Transmission Date: 20091009
  Serious: Yes (Hospitalization)
  Sender: FDA-Public Use
  Company Number: 2009US001081

PATIENT
  Age: 6 Year
  Sex: Male
  Weight: 18 kg

DRUGS (4)
  1. FK506-OINTMENT (TACROLIMUS OINTMENT) OINTMENT [Suspect]
     Indication: DERMATITIS ATOPIC
     Dosage: 0.1%, WEEKLY, TOPICAL; 3XWEEKLY, TOPICAL
     Route: 061
     Dates: start: 20050101, end: 20080527
  2. FK506-OINTMENT (TACROLIMUS OINTMENT) OINTMENT [Suspect]
     Indication: DERMATITIS ATOPIC
     Dosage: 0.1%, WEEKLY, TOPICAL; 3XWEEKLY, TOPICAL
     Route: 061
     Dates: start: 20050101
  3. MOMETASONE FUROATE [Concomitant]
  4. TRIAMCINOLONE [Concomitant]

REACTIONS (9)
  - ABSCESS [None]
  - CELLULITIS [None]
  - JOINT RANGE OF MOTION DECREASED [None]
  - LYMPHADENITIS [None]
  - MOVEMENT DISORDER [None]
  - NO THERAPEUTIC RESPONSE [None]
  - PAIN [None]
  - RASH [None]
  - VIRAL UPPER RESPIRATORY TRACT INFECTION [None]
